FAERS Safety Report 9209676 (Version 1)
Quarter: 2013Q1

REPORT INFORMATION
  Report Type: Spontaneous
  Country: US (occurrence: None)
  Receive Date: 20120820
  Receipt Date: 20120820
  Transmission Date: 20140127
  Serious: No
  Sender: FDA-Public Use
  Company Number: 1000030470

PATIENT
  Age: 46 Year
  Sex: Female

DRUGS (5)
  1. VIIBRYD [Suspect]
     Indication: DEPRESSION
     Dosage: 10 MG (10 MG, 1 IN 1 D), ORAL
     Route: 048
     Dates: start: 20120508
  2. SEROQUEL (QUETIAPINE FUMARATE( (QUETIAPINE FUMARATE) [Concomitant]
  3. BACLOFEN (BACLOFEN) (BACLOFEN) [Concomitant]
  4. KLONOPIN [Concomitant]
  5. MOTRIN (IBUPROFEN) (IBUPROFEN) [Concomitant]

REACTIONS (1)
  - Insomnia [None]
